FAERS Safety Report 25793865 (Version 2)
Quarter: 2025Q4

REPORT INFORMATION
  Report Type: Spontaneous
  Country: CN (occurrence: CN)
  Receive Date: 20250912
  Receipt Date: 20251125
  Transmission Date: 20260118
  Serious: Yes (Other)
  Sender: MERCK SHARP & DOHME LLC
  Company Number: CN-SICHUAN KELUN- BIOTECH BIOPHARMACEUTICAL CO. LTD.-2025KB000200

PATIENT
  Age: 61 Year
  Sex: Male
  Weight: 46 kg

DRUGS (2)
  1. SACITUZUMAB TIRUMOTECAN [Suspect]
     Active Substance: SACITUZUMAB TIRUMOTECAN
     Indication: Oesophageal squamous cell carcinoma
     Dosage: STRENGTH: 200 MG/VAIL
     Route: 041
     Dates: start: 20250811, end: 20250811
  2. AFATINIB DIMALEATE [Suspect]
     Active Substance: AFATINIB DIMALEATE
     Indication: Oesophageal squamous cell carcinoma
     Route: 048
     Dates: start: 20250815, end: 20250825

REACTIONS (2)
  - Myelosuppression [Recovering/Resolving]
  - Off label use [Unknown]

NARRATIVE: CASE EVENT DATE: 20250811
